FAERS Safety Report 6817570-6 (Version None)
Quarter: 2010Q3

REPORT INFORMATION
  Report Type: 
  Country: None (occurrence: None)
  Receive Date: 20100706
  Receipt Date: 20100625
  Transmission Date: 20110219
  Serious: Yes (Hospitalization)
  Sender: FDA-Public Use
  Company Number: AU-ELI_LILLY_AND_COMPANY-AU201006007357

PATIENT
  Sex: Female

DRUGS (16)
  1. GEMCITABINE HYDROCHLORIDE [Suspect]
     Indication: PANCREATIC CARCINOMA
     Dosage: 1500 MG, UNKNOWN
     Route: 042
     Dates: start: 20091113
  2. PACLITAXEL [Suspect]
     Indication: PANCREATIC CARCINOMA
     Dosage: 187 MG, UNK
     Route: 042
     Dates: start: 20091113
  3. TEMAZEPAM [Concomitant]
     Indication: INSOMNIA
     Dosage: UNK, UNKNOWN
     Route: 048
     Dates: start: 20090801
  4. ACTRAPID /00030501/ [Concomitant]
     Indication: DIABETES MELLITUS
     Dosage: UNK, UNKNOWN
     Route: 058
     Dates: start: 20090921
  5. NOVOMIX /01475801/ [Concomitant]
     Indication: DIABETES MELLITUS
     Dosage: UNK, UNKNOWN
     Route: 058
     Dates: start: 20090921
  6. METOCLOPRAMIDE [Concomitant]
     Indication: PROPHYLAXIS
     Dosage: UNK, UNKNOWN
     Route: 048
     Dates: start: 20091113
  7. PARACETAMOL [Concomitant]
     Indication: PAIN
     Dosage: UNK, UNKNOWN
     Route: 048
     Dates: start: 20091113
  8. LOPERAMIDE [Concomitant]
     Indication: DIARRHOEA
     Dosage: UNK, UNKNOWN
     Route: 048
     Dates: start: 20091125
  9. MAGNESIUM [Concomitant]
     Indication: GASTROOESOPHAGEAL REFLUX DISEASE
     Dosage: UNK, UNKNOWN
     Route: 048
     Dates: start: 20091120
  10. ESOMEPRAZOLE MAGNESIUM [Concomitant]
     Indication: GASTROOESOPHAGEAL REFLUX DISEASE
     Dosage: UNK, UNKNOWN
     Route: 048
     Dates: start: 20091223
  11. PANCRELIPASE [Concomitant]
     Indication: MALABSORPTION
     Dosage: UNK, UNKNOWN
     Route: 048
     Dates: start: 20100226
  12. CALCIUM + VITAMIN D [Concomitant]
     Indication: VITAMIN SUPPLEMENTATION
     Dosage: UNK, UNKNOWN
     Route: 048
  13. NORMAL SALINE [Concomitant]
     Dosage: UNK, UNKNOWN
     Route: 042
     Dates: start: 20091113
  14. PANTOPRAZOLE [Concomitant]
     Dosage: UNK, UNKNOWN
     Route: 065
  15. ONDANSETRON [Concomitant]
     Dosage: UNK, UNKNOWN
     Route: 065
  16. ALUMINUM HYDROXIDE GEL [Concomitant]
     Dosage: UNK, UNKNOWN
     Route: 065

REACTIONS (1)
  - BACTERIAL SEPSIS [None]
